FAERS Safety Report 13909768 (Version 1)
Quarter: 2017Q3

REPORT INFORMATION
  Report Type: Report from Study
  Country: None (occurrence: BR)
  Receive Date: 20170828
  Receipt Date: 20170828
  Transmission Date: 20171127
  Serious: Yes (Other)
  Sender: FDA-Public Use
  Company Number: BR-ABBVIE-17K-020-2079690-00

PATIENT
  Age: 48 Year
  Sex: Female
  Weight: 57 kg

DRUGS (4)
  1. HUMIRA [Suspect]
     Active Substance: ADALIMUMAB
     Dosage: WEEK 1
     Route: 058
  2. HUMIRA [Suspect]
     Active Substance: ADALIMUMAB
     Indication: PSORIASIS
     Dosage: WEEK 0
     Route: 058
     Dates: start: 20090101, end: 20090101
  3. HUMIRA [Suspect]
     Active Substance: ADALIMUMAB
     Route: 058
  4. HUMIRA [Suspect]
     Active Substance: ADALIMUMAB
     Route: 058

REACTIONS (21)
  - Uterine neoplasm [Unknown]
  - Arthralgia [Not Recovered/Not Resolved]
  - Haemorrhagic cyst [Unknown]
  - Insomnia [Unknown]
  - Pain [Unknown]
  - Nasal pruritus [Unknown]
  - Intervertebral disc protrusion [Unknown]
  - Exostosis [Not Recovered/Not Resolved]
  - Back pain [Unknown]
  - Limb injury [Not Recovered/Not Resolved]
  - Dysstasia [Unknown]
  - Mobility decreased [Unknown]
  - Hypoaesthesia [Unknown]
  - Thirst [Unknown]
  - Pain in extremity [Not Recovered/Not Resolved]
  - Uterine disorder [Unknown]
  - Hypoaesthesia [Not Recovered/Not Resolved]
  - Pain in extremity [Unknown]
  - Lung disorder [Unknown]
  - Gait disturbance [Unknown]
  - Arthralgia [Unknown]

NARRATIVE: CASE EVENT DATE: 201606
